FAERS Safety Report 24290027 (Version 1)
Quarter: 2024Q3

REPORT INFORMATION
  Report Type: Spontaneous
  Country: US (occurrence: None)
  Receive Date: 20240905
  Receipt Date: 20240905
  Transmission Date: 20241017
  Serious: Yes (unspecified)
  Sender: Public
  Company Number: None

PATIENT
  Age: 52 Year
  Sex: Female
  Weight: 81 kg

DRUGS (10)
  1. SUTAB [Suspect]
     Active Substance: MAGNESIUM SULFATE\POTASSIUM CHLORIDE\SODIUM SULFATE
     Indication: Colonoscopy
     Dosage: OTHER QUANTITY : 12 TABLET(S);?FREQUENCY : EVERY 8 HOURS;?
     Route: 048
     Dates: start: 20240904, end: 20240904
  2. VITAMIN C [Concomitant]
     Active Substance: ASCORBIC ACID
  3. VIT D [Concomitant]
  4. Vit B [Concomitant]
  5. MELATONIN [Concomitant]
  6. ZINC [Concomitant]
  7. MAGNESIUM [Concomitant]
  8. CURCUMIN [Concomitant]
     Active Substance: CURCUMIN
  9. lemon ginger tea [Concomitant]
  10. milk thistle tea [Concomitant]

REACTIONS (13)
  - Pruritus [None]
  - Dyspnoea [None]
  - Cough [None]
  - Urticaria [None]
  - Dizziness [None]
  - Faeces soft [None]
  - Hypersensitivity [None]
  - Vomiting [None]
  - Chills [None]
  - Headache [None]
  - Diarrhoea [None]
  - Erythema [None]
  - Muscle tightness [None]

NARRATIVE: CASE EVENT DATE: 20240904
